FAERS Safety Report 5559010-3 (Version None)
Quarter: 2007Q4

REPORT INFORMATION
  Report Type: 
  Country: None (occurrence: None)
  Receive Date: 20071214
  Receipt Date: 20070913
  Transmission Date: 20080405
  Serious: No
  Sender: FDA-Public Use
  Company Number: US-ABBOTT-07P-163-0417115-00

PATIENT
  Sex: Female
  Weight: 75.364 kg

DRUGS (10)
  1. HUMIRA [Suspect]
     Indication: RHEUMATOID ARTHRITIS
     Dosage: SYRINGE
     Route: 058
  2. HUMIRA [Suspect]
     Dosage: PEN
     Route: 058
  3. HUMIRA [Suspect]
     Dosage: PEN
     Route: 058
     Dates: start: 20070501
  4. ESTROGENS CONJUGATED [Concomitant]
     Indication: HORMONE REPLACEMENT THERAPY
  5. ENALAPRIL MALEATE [Concomitant]
     Indication: HYPERTENSION
  6. CELECOXIB [Concomitant]
     Indication: RHEUMATOID ARTHRITIS
  7. FOLIC ACID [Concomitant]
     Indication: VITAMIN SUPPLEMENTATION
  8. PREDNISONE [Concomitant]
     Indication: RHEUMATOID ARTHRITIS
  9. LEFLUNOMIDE [Concomitant]
     Indication: RHEUMATOID ARTHRITIS
  10. ESOMEPRAZOLE MAGNESIUM [Concomitant]
     Indication: GASTROOESOPHAGEAL REFLUX PROPHYLAXIS

REACTIONS (5)
  - INFECTION [None]
  - INJECTION SITE ERYTHEMA [None]
  - INJECTION SITE PRURITUS [None]
  - INJECTION SITE RASH [None]
  - SALMONELLOSIS [None]
